FAERS Safety Report 5285180-0 (Version None)
Quarter: 2007Q2

REPORT INFORMATION
  Report Type: 
  Country: None (occurrence: None)
  Receive Date: 20070403
  Receipt Date: 20070330
  Transmission Date: 20071010
  Serious: Yes (Other)
  Sender: FDA-Public Use
  Company Number: 2006UW23619

PATIENT
  Age: 596 Month
  Sex: Male
  Weight: 115.9 kg

DRUGS (2)
  1. SEROQUEL [Suspect]
     Indication: SCHIZOPHRENIA
     Route: 048
     Dates: start: 20050801, end: 20060201
  2. ABILIFY [Concomitant]

REACTIONS (3)
  - DEPRESSION [None]
  - DIABETES MELLITUS [None]
  - OESOPHAGEAL VARICES HAEMORRHAGE [None]
